FAERS Safety Report 7024096-6 (Version None)
Quarter: 2010Q3

REPORT INFORMATION
  Report Type: 
  Country: None (occurrence: None)
  Receive Date: 20100929
  Receipt Date: 20100917
  Transmission Date: 20110219
  Serious: Yes (Hospitalization)
  Sender: FDA-Public Use
  Company Number: DSU-2010-04907

PATIENT
  Age: 67 Year
  Sex: Male
  Weight: 79.8331 kg

DRUGS (6)
  1. BENICAR HCT [Suspect]
     Indication: HYPERTENSION
     Dosage: 20/12.5 MG (QD) PER ORAL, 40/25 MG (TWO 20/12.5 MG TABLETS QD), PER ORAL
     Route: 048
     Dates: start: 20070101, end: 20100901
  2. BENICAR HCT [Suspect]
     Indication: HYPERTENSION
     Dosage: 20/12.5 MG (QD) PER ORAL, 40/25 MG (TWO 20/12.5 MG TABLETS QD), PER ORAL
     Route: 048
     Dates: start: 20100901
  3. MULTAQ [Concomitant]
  4. PLAVIX [Concomitant]
  5. LIPITOR [Concomitant]
  6. PROTONIX [Concomitant]

REACTIONS (5)
  - ARRHYTHMIA [None]
  - BLOOD PRESSURE INCREASED [None]
  - CHEST PAIN [None]
  - HEART RATE INCREASED [None]
  - PAIN IN EXTREMITY [None]
